FAERS Safety Report 21854208 (Version 2)
Quarter: 2023Q1

REPORT INFORMATION
  Report Type: Spontaneous
  Country: NL (occurrence: NL)
  Receive Date: 20230112
  Receipt Date: 20230201
  Transmission Date: 20230417
  Serious: Yes (Hospitalization)
  Sender: FDA-Public Use
  Company Number: NL-TEVA-2023-NL-2844192

PATIENT
  Age: 27 Year
  Sex: Female

DRUGS (17)
  1. LITHIUM [Suspect]
     Active Substance: LITHIUM
     Indication: Bipolar I disorder
     Dosage: 1000 MILLIGRAM DAILY; ONCE A DAY
     Route: 065
  2. OLANZAPINE [Suspect]
     Active Substance: OLANZAPINE
     Indication: Bipolar I disorder
     Dosage: 7.5 MILLIGRAM DAILY; ONCE A DAY
     Route: 065
  3. PALIPERIDONE [Suspect]
     Active Substance: PALIPERIDONE
     Indication: Bipolar I disorder
     Dosage: LOADING DOSE; DAY 1 (LONG ACTING INJECTABLE), 150 MG
     Route: 065
     Dates: start: 202005
  4. PALIPERIDONE [Suspect]
     Active Substance: PALIPERIDONE
     Dosage: FORMULATION: LONG ACTING INJECTABLE, 100 MG
     Route: 065
  5. PALIPERIDONE [Suspect]
     Active Substance: PALIPERIDONE
     Dosage: FORMULATION: LONG ACTING INJECTABLE, 150 MG ONCE 4 WEEKS
     Route: 065
  6. PALIPERIDONE [Suspect]
     Active Substance: PALIPERIDONE
     Dosage: FORMULATION: LONG ACTING INJECTABLE, 525 ONCE IN 3 MONTHS
     Route: 065
     Dates: end: 202102
  7. HALOPERIDOL [Suspect]
     Active Substance: HALOPERIDOL
     Indication: Bipolar I disorder
     Route: 065
  8. LORAZEPAM [Suspect]
     Active Substance: LORAZEPAM
     Indication: Bipolar I disorder
     Dosage: 2.5 MILLIGRAM DAILY; ONCE DAY
     Route: 065
  9. ZUCLOPENTHIXOL [Suspect]
     Active Substance: ZUCLOPENTHIXOL
     Indication: Bipolar I disorder
     Route: 065
  10. HYPROMELLOSES [Suspect]
     Active Substance: HYPROMELLOSES
     Indication: Dry eye
     Route: 047
     Dates: start: 202009
  11. MEDROXYPROGESTERONE [Concomitant]
     Active Substance: MEDROXYPROGESTERONE
     Indication: Product used for unknown indication
     Dosage: 150 MG ONCE IN 12 WEEKS
     Route: 030
  12. ZOPICLONE [Concomitant]
     Active Substance: ZOPICLONE
     Indication: Product used for unknown indication
     Dosage: 7.5 MILLIGRAM DAILY; ONCE A DAY
     Route: 065
  13. LEVOMEPROMAZINE [Concomitant]
     Active Substance: LEVOMEPROMAZINE
     Indication: Product used for unknown indication
     Dosage: DOSE: 25-50MG THREE TIMES DAILY
     Route: 065
  14. LEVOMEPROMAZINE [Concomitant]
     Active Substance: LEVOMEPROMAZINE
     Dosage: 25 MILLIGRAM DAILY; ONCE A DAY
     Route: 065
     Dates: end: 202012
  15. PROMETHAZINE [Concomitant]
     Active Substance: PROMETHAZINE HYDROCHLORIDE
     Indication: Product used for unknown indication
     Dosage: 100 MILLIGRAM DAILY; 4 TIMES A DAY
     Route: 065
  16. PROMETHAZINE [Concomitant]
     Active Substance: PROMETHAZINE HYDROCHLORIDE
     Dosage: 25 MILLIGRAM DAILY; ONCE A DAY
     Route: 065
  17. PROMETHAZINE [Concomitant]
     Active Substance: PROMETHAZINE HYDROCHLORIDE
     Dosage: DOSE: 25-75MG
     Route: 065

REACTIONS (4)
  - Blepharospasm [Unknown]
  - Extrapyramidal disorder [Unknown]
  - Therapy non-responder [Unknown]
  - Drug ineffective [Unknown]
